FAERS Safety Report 6790276-8 (Version None)
Quarter: 2010Q2

REPORT INFORMATION
  Report Type: 
  Country: None (occurrence: None)
  Receive Date: 20100624
  Receipt Date: 20100616
  Transmission Date: 20101027
  Serious: Yes (Hospitalization, Other)
  Sender: FDA-Public Use
  Company Number: FR-ALLERGAN-1006373US

PATIENT
  Age: 67 Year
  Sex: Male
  Weight: 60 kg

DRUGS (12)
  1. BOTOX [Suspect]
     Indication: MUSCLE SPASTICITY
     Dosage: 125 UNITS, SINGLE
     Route: 030
     Dates: start: 20090325, end: 20090325
  2. BOTOX [Suspect]
     Dosage: UNK, SINGLE
     Dates: start: 20090702, end: 20090702
  3. BUFLOMEDIL [Suspect]
     Indication: ARTERIAL DISORDER
     Dosage: 600 MG, QD (150 MG X 4)
     Route: 048
     Dates: start: 20081228, end: 20090410
  4. ZAMUDOL [Suspect]
     Indication: PAIN IN EXTREMITY
     Dosage: 400 UNK, QD (200LP X2)
     Route: 048
     Dates: start: 20090226
  5. STABLON [Suspect]
     Indication: DEPRESSION
     Dosage: 25 MG, QD (12.5 MGX2)
     Route: 048
     Dates: start: 20081205
  6. OGASTORO [Concomitant]
     Indication: DRUG USE FOR UNKNOWN INDICATION
     Dosage: 15 MG, QD
  7. PLAVIX [Concomitant]
     Indication: ISCHAEMIC STROKE
     Dosage: 75 MG, QD
     Route: 048
  8. PLAVIX [Concomitant]
     Indication: CAROTID ARTERY THROMBOSIS
  9. FORLAX [Concomitant]
     Indication: CONSTIPATION
     Dosage: 2DF DAILY
     Dates: start: 20081121
  10. LIPANTHYL [Concomitant]
     Indication: DYSLIPIDAEMIA
     Dosage: 145 MG, QD
     Dates: start: 20090209
  11. LIPANTHYL [Concomitant]
     Indication: ISCHAEMIC STROKE
  12. LOVENOX [Concomitant]
     Indication: CAROTID ARTERY THROMBOSIS
     Dosage: 0.4 ML, QD
     Route: 058
     Dates: start: 20081120

REACTIONS (2)
  - ELECTROCARDIOGRAM ST SEGMENT DEPRESSION [None]
  - EPILEPSY [None]
